FAERS Safety Report 18418786 (Version 1)
Quarter: 2020Q4

REPORT INFORMATION
  Report Type: Spontaneous
  Country: US (occurrence: US)
  Receive Date: 20201023
  Receipt Date: 20201023
  Transmission Date: 20210114
  Serious: Yes (Hospitalization)
  Sender: FDA-Public Use
  Company Number: US-ACCORD-205686

PATIENT
  Age: 29 Year
  Sex: Male

DRUGS (2)
  1. NALTREXONE/NALTREXONE HYDROCHLORIDE [Suspect]
     Active Substance: NALTREXONE
     Route: 048
  2. DIAMORPHINE [Concomitant]
     Active Substance: DIAMORPHINE
     Dosage: IN MORNING
     Route: 042

REACTIONS (17)
  - Lactic acidosis [Recovered/Resolved]
  - Agitation [Recovered/Resolved]
  - Blood glucose increased [Recovered/Resolved]
  - Discomfort [Recovered/Resolved]
  - Accidental exposure to product [Unknown]
  - Alkalosis [Recovered/Resolved]
  - Vomiting [Recovered/Resolved]
  - Hypocapnia [Recovered/Resolved]
  - Piloerection [Recovered/Resolved]
  - Withdrawal syndrome [Recovered/Resolved]
  - Abdominal pain [Recovered/Resolved]
  - Abdominal discomfort [Recovered/Resolved]
  - Hallucination [Recovered/Resolved]
  - Hyperhidrosis [Recovered/Resolved]
  - Oxygen saturation decreased [Recovered/Resolved]
  - Speech disorder [Recovered/Resolved]
  - Blood potassium decreased [Recovered/Resolved]
